FAERS Safety Report 21811130 (Version 1)
Quarter: 2023Q1

REPORT INFORMATION
  Report Type: Spontaneous
  Country: US (occurrence: None)
  Receive Date: 20230103
  Receipt Date: 20230103
  Transmission Date: 20230417
  Serious: No
  Sender: FDA-Public Use
  Company Number: US-Eisai Medical Research-EC-2022-129407

PATIENT
  Age: 87 Year
  Sex: Female

DRUGS (2)
  1. ERIBULIN [Suspect]
     Active Substance: ERIBULIN
     Indication: Breast cancer metastatic
     Route: 041
  2. ERIBULIN [Suspect]
     Active Substance: ERIBULIN
     Dosage: DOSE UNKNOWN (DOSE REDUCED)
     Route: 041

REACTIONS (1)
  - Oedema peripheral [Unknown]
